FAERS Safety Report 12670815 (Version 1)
Quarter: 2016Q3

REPORT INFORMATION
  Report Type: Spontaneous
  Country: US (occurrence: None)
  Receive Date: 20160819
  Receipt Date: 20160819
  Transmission Date: 20161109
  Serious: Yes (Hospitalization)
  Sender: FDA-Public Use
  Company Number: None

PATIENT
  Age: 80 Year
  Sex: Male
  Weight: 78.9 kg

DRUGS (2)
  1. APIXABAN [Suspect]
     Active Substance: APIXABAN
     Indication: THROMBOSIS
     Route: 048
     Dates: start: 20151229, end: 20160509
  2. NAPROXEN. [Suspect]
     Active Substance: NAPROXEN
     Route: 048
     Dates: start: 20160111, end: 20160509

REACTIONS (4)
  - Gastrointestinal haemorrhage [None]
  - Gastric haemorrhage [None]
  - Labelled drug-drug interaction medication error [None]
  - Haemoglobin decreased [None]

NARRATIVE: CASE EVENT DATE: 20160505
